FAERS Safety Report 6788348-7 (Version None)
Quarter: 2010Q2

REPORT INFORMATION
  Report Type: 
  Country: None (occurrence: None)
  Receive Date: 20100623
  Receipt Date: 20080326
  Transmission Date: 20101027
  Serious: No
  Sender: FDA-Public Use
  Company Number: US-PFIZER INC-2008016372

PATIENT
  Sex: Female

DRUGS (4)
  1. XALATAN [Suspect]
     Indication: GLAUCOMA
     Route: 047
     Dates: start: 20060101
  2. TIMOLOL MALEATE [Concomitant]
  3. PREDNISOLONE [Concomitant]
     Route: 048
     Dates: start: 20070419
  4. LEVOTHYROXINE SODIUM [Concomitant]
     Route: 048
     Dates: start: 20070122

REACTIONS (1)
  - FOREIGN BODY SENSATION IN EYES [None]
